FAERS Safety Report 4355591-6 (Version None)
Quarter: 2004Q2

REPORT INFORMATION
  Report Type: 
  Country: None (occurrence: None)
  Receive Date: 20040510
  Receipt Date: 20040426
  Transmission Date: 20050107
  Serious: Yes (Hospitalization)
  Sender: FDA-Public Use
  Company Number: FI-GLAXOSMITHKLINE-B0331250A

PATIENT
  Age: 62 Year
  Sex: Male

DRUGS (2)
  1. LEUKERAN [Suspect]
     Dates: start: 20030912, end: 20031127
  2. PREDNISOLONE [Concomitant]
     Dates: start: 20030915

REACTIONS (1)
  - ALVEOLITIS [None]
